FAERS Safety Report 6755246-4 (Version None)
Quarter: 2010Q2

REPORT INFORMATION
  Report Type: 
  Country: None (occurrence: None)
  Receive Date: 20100604
  Receipt Date: 20100526
  Transmission Date: 20101027
  Serious: Yes (Hospitalization)
  Sender: FDA-Public Use
  Company Number: US-BIOGENIDEC-2010BI008783

PATIENT
  Age: 51 Year
  Sex: Female

DRUGS (5)
  1. AVONEX [Suspect]
     Indication: MULTIPLE SCLEROSIS
     Route: 030
     Dates: start: 20050701, end: 20060101
  2. AVONEX [Suspect]
     Route: 030
     Dates: start: 20070701
  3. OXYBUTYNIN CHLORIDE [Concomitant]
     Indication: BLADDER DISORDER
  4. TIZANIDINE HCL [Concomitant]
     Indication: MUSCLE SPASMS
  5. DEPRESSION MEDICATION NOS [Concomitant]
     Indication: DEPRESSION

REACTIONS (12)
  - CONVULSION [None]
  - DYSURIA [None]
  - FAECALOMA [None]
  - FATIGUE [None]
  - HYPERTENSION [None]
  - INSOMNIA [None]
  - MEMORY IMPAIRMENT [None]
  - MULTIPLE SCLEROSIS [None]
  - MUSCLE SPASMS [None]
  - PAIN [None]
  - URINARY TRACT INFECTION [None]
  - URINE OUTPUT DECREASED [None]
